FAERS Safety Report 17906891 (Version 3)
Quarter: 2020Q3

REPORT INFORMATION
  Report Type: Spontaneous
  Country: US (occurrence: US)
  Receive Date: 20200617
  Receipt Date: 20200813
  Transmission Date: 20201103
  Serious: Yes (Other)
  Sender: FDA-Public Use
  Company Number: US-PFIZER INC-2020233648

PATIENT
  Age: 64 Year
  Sex: Female
  Weight: 79.38 kg

DRUGS (3)
  1. METHOTREXATE SODIUM. [Suspect]
     Active Substance: METHOTREXATE SODIUM
     Dosage: WEEKLY
  2. METHOTREXATE SODIUM. [Suspect]
     Active Substance: METHOTREXATE SODIUM
     Route: 048
  3. METHOTREXATE SODIUM. [Suspect]
     Active Substance: METHOTREXATE SODIUM
     Route: 051

REACTIONS (8)
  - Illness [Unknown]
  - Nausea [Unknown]
  - Rheumatoid nodule [Unknown]
  - Abdominal discomfort [Unknown]
  - Diarrhoea [Unknown]
  - Burning sensation [Unknown]
  - Rheumatoid arthritis [Unknown]
  - Ulcer [Unknown]
